FAERS Safety Report 5358285-3 (Version None)
Quarter: 2007Q2

REPORT INFORMATION
  Report Type: 
  Country: None (occurrence: None)
  Receive Date: 20070613
  Receipt Date: 20070613
  Transmission Date: 20071010
  Serious: Yes (Other)
  Sender: FDA-Public Use
  Company Number: None

PATIENT
  Sex: Female
  Weight: 158.759 kg

DRUGS (1)
  1. OXYCODONE HCL [Suspect]
     Indication: INTERVERTEBRAL DISC DISORDER
     Dosage: 60MG AT ONE TIME/LATER 80MG PRESCRIBED Q8HOURS AT ONE TIME LATER PRESCRIBED BID PO
     Route: 048
     Dates: start: 20050101, end: 20060101

REACTIONS (2)
  - INADEQUATE ANALGESIA [None]
  - THERAPEUTIC RESPONSE UNEXPECTED WITH DRUG SUBSTITUTION [None]
